FAERS Safety Report 24464437 (Version 1)
Quarter: 2024Q4

REPORT INFORMATION
  Report Type: Report from Study
  Country: US (occurrence: US)
  Receive Date: 20241018
  Receipt Date: 20241018
  Transmission Date: 20250115
  Serious: No
  Sender: ROCHE
  Company Number: US-ROCHE-3494528

PATIENT
  Age: 62 Year
  Sex: Female
  Weight: 88.45 kg

DRUGS (12)
  1. XOLAIR [Suspect]
     Active Substance: OMALIZUMAB
     Indication: Urticaria
     Route: 065
  2. CELLCEPT [Suspect]
     Active Substance: MYCOPHENOLATE MOFETIL
     Indication: Product used for unknown indication
     Route: 065
  3. ALPRAZOLAM [Concomitant]
     Active Substance: ALPRAZOLAM
  4. BENLYSTA [Concomitant]
     Active Substance: BELIMUMAB
     Route: 058
  5. CHOLECALCIFEROL [Concomitant]
     Active Substance: CHOLECALCIFEROL
     Dosage: 50000 U
  6. LANSOPRAZOLE [Concomitant]
     Active Substance: LANSOPRAZOLE
  7. LEVOTHYROXINE [Concomitant]
     Active Substance: LEVOTHYROXINE
  8. OZEMPIC [Concomitant]
     Active Substance: SEMAGLUTIDE
  9. PREDNISONE [Concomitant]
     Active Substance: PREDNISONE
  10. PREGABALIN [Concomitant]
     Active Substance: PREGABALIN
  11. SUCRALFATE [Concomitant]
     Active Substance: SUCRALFATE
  12. TIZANIDINE [Concomitant]
     Active Substance: TIZANIDINE

REACTIONS (5)
  - Rash [Unknown]
  - Pruritus [Unknown]
  - Erythema [Unknown]
  - Ill-defined disorder [Unknown]
  - Inflammation [Unknown]
